FAERS Safety Report 15812523 (Version 1)
Quarter: 2019Q1

REPORT INFORMATION
  Report Type: Spontaneous
  Country: US (occurrence: US)
  Receive Date: 20190111
  Receipt Date: 20190111
  Transmission Date: 20190417
  Serious: No
  Sender: FDA-Public Use
  Company Number: US-ALLERGAN-1847226US

PATIENT
  Sex: Male

DRUGS (2)
  1. DALVANCE [Suspect]
     Active Substance: DALBAVANCIN
     Indication: CELLULITIS
     Dosage: 1500 MG, SINGLE
     Route: 042
     Dates: start: 20180928, end: 20180928
  2. DALVANCE [Suspect]
     Active Substance: DALBAVANCIN
     Indication: WOUND

REACTIONS (3)
  - Chest discomfort [Unknown]
  - Back pain [Unknown]
  - Flushing [Unknown]

NARRATIVE: CASE EVENT DATE: 20180928
